FAERS Safety Report 24382249 (Version 1)
Quarter: 2024Q4

REPORT INFORMATION
  Report Type: Report from Study
  Country: US (occurrence: US)
  Receive Date: 20241001
  Receipt Date: 20241001
  Transmission Date: 20250114
  Serious: Yes (Other)
  Sender: TAKEDA
  Company Number: US-TAKEDA-US202021995

PATIENT
  Age: 30 Year
  Sex: Female

DRUGS (1)
  1. HUMAN IMMUNOGLOBULIN G [Suspect]
     Active Substance: HUMAN IMMUNOGLOBULIN G
     Indication: Primary immunodeficiency syndrome
     Dosage: UNK
     Route: 042

REACTIONS (10)
  - Surgery [Unknown]
  - Infusion related reaction [Unknown]
  - Asthma [Unknown]
  - Immunoglobulins abnormal [Not Recovered/Not Resolved]
  - Pregnancy [Recovered/Resolved]
  - Illness [Unknown]
  - Bronchitis [Unknown]
  - COVID-19 [Unknown]
  - Sinusitis [Unknown]
  - Headache [Unknown]

NARRATIVE: CASE EVENT DATE: 20240925
